FAERS Safety Report 16082439 (Version 3)
Quarter: 2020Q1

REPORT INFORMATION
  Report Type: Report from Study
  Country: US (occurrence: US)
  Receive Date: 20190318
  Receipt Date: 20200203
  Transmission Date: 20200409
  Serious: Yes (Hospitalization, Other)
  Sender: FDA-Public Use
  Company Number: US-ALEXION PHARMACEUTICALS INC.-A201903933

PATIENT
  Sex: Female

DRUGS (3)
  1. SOLIRIS [Suspect]
     Active Substance: ECULIZUMAB
     Indication: PAROXYSMAL NOCTURNAL HAEMOGLOBINURIA
     Dosage: 900 MG, Q2W
     Route: 042
     Dates: start: 20180426
  2. SOLIRIS [Suspect]
     Active Substance: ECULIZUMAB
     Dosage: 1200 MG, Q2W
     Route: 042
     Dates: start: 20180426
  3. LOVENOX [Suspect]
     Active Substance: ENOXAPARIN SODIUM
     Indication: HEPATIC VASCULAR THROMBOSIS
     Dosage: 2 INJECTIONS, QD
     Route: 065

REACTIONS (5)
  - Abdominal pain upper [Unknown]
  - Exposure during pregnancy [Recovered/Resolved]
  - Hepatic vascular thrombosis [Unknown]
  - Pyrexia [Unknown]
  - Injection site pain [Unknown]

NARRATIVE: CASE EVENT DATE: 20200121
